FAERS Safety Report 5055981-2 (Version None)
Quarter: 2006Q3

REPORT INFORMATION
  Report Type: 
  Country: None (occurrence: None)
  Receive Date: 20060717
  Receipt Date: 20060705
  Transmission Date: 20061208
  Serious: Yes (Hospitalization, Other)
  Sender: FDA-Public Use
  Company Number: 001-0902-M0100041

PATIENT
  Age: 59 Year
  Sex: Female
  Weight: 63.5036 kg

DRUGS (14)
  1. NARDIL [Suspect]
     Indication: DEPRESSION
     Dosage: SEEI MAGE
     Route: 048
     Dates: end: 19900101
  2. NARDIL [Suspect]
     Indication: DEPRESSION
     Dosage: SEEI MAGE
     Route: 048
     Dates: start: 19990101, end: 19990101
  3. NARDIL [Suspect]
     Indication: DEPRESSION
     Dosage: SEEI MAGE
     Route: 048
     Dates: end: 19990101
  4. NARDIL [Suspect]
     Indication: DEPRESSION
     Dosage: SEEI MAGE
     Route: 048
     Dates: start: 19990101, end: 20010426
  5. NARDIL [Suspect]
     Indication: DEPRESSION
     Dosage: SEEI MAGE
     Route: 048
     Dates: start: 20010426, end: 20010509
  6. NARDIL [Suspect]
     Indication: DEPRESSION
     Dosage: SEEI MAGE
     Route: 048
     Dates: start: 19900101
  7. NARDIL [Suspect]
     Indication: DEPRESSION
     Dosage: SEEI MAGE
     Route: 048
     Dates: start: 20010509
  8. STELAZINE [Concomitant]
  9. CENTRUM (MINERALS NOS, VITAMINS NOS) [Concomitant]
  10. SYNTHROID [Concomitant]
  11. EVISTA [Concomitant]
  12. VITAMIN E [Concomitant]
  13. VITAMIN C (VITAMIN C) [Concomitant]
  14. POSTURE-D ^WHITEHALL^ (CALCIUM PHOSPHATE, COLECALCIFEROL, ERGOCALCIFER [Concomitant]

REACTIONS (8)
  - ANXIETY [None]
  - BLOOD PRESSURE INCREASED [None]
  - CHAPPED LIPS [None]
  - DEPRESSION [None]
  - DRY MOUTH [None]
  - NERVOUS SYSTEM DISORDER [None]
  - PARAESTHESIA [None]
  - SYNCOPE [None]
